FAERS Safety Report 8450420-3 (Version None)
Quarter: 2012Q2

REPORT INFORMATION
  Report Type: 
  Country: None (occurrence: None)
  Receive Date: 20120620
  Receipt Date: 20120605
  Transmission Date: 20120825
  Serious: Yes (Hospitalization)
  Sender: FDA-Public Use
  Company Number: JP-ASTRAZENECA-2012SE36150

PATIENT
  Age: 32656 Day
  Sex: Male

DRUGS (21)
  1. AZD6140 [Suspect]
     Indication: ACUTE CORONARY SYNDROME
     Route: 048
     Dates: start: 20111028, end: 20120530
  2. CARVEDILOL [Concomitant]
     Route: 048
     Dates: start: 20111105, end: 20111107
  3. AMIODARONE HYDROCHLORIDE [Concomitant]
     Route: 048
     Dates: start: 20111112
  4. SIGMART [Concomitant]
     Route: 048
     Dates: start: 20111112
  5. PLACEBO [Suspect]
     Indication: ACUTE CORONARY SYNDROME
     Route: 048
     Dates: start: 20111028, end: 20120530
  6. LIPITOR [Concomitant]
     Indication: HYPERLIPIDAEMIA
     Route: 048
     Dates: start: 20111029
  7. ASPIRIN [Suspect]
     Indication: ACUTE CORONARY SYNDROME
     Route: 048
     Dates: start: 20111028, end: 20111028
  8. SIGMART [Concomitant]
     Indication: CARDIAC FAILURE
     Route: 042
     Dates: start: 20111028, end: 20111029
  9. SIGMART [Concomitant]
     Route: 051
     Dates: start: 20111028, end: 20111028
  10. CARVEDILOL [Concomitant]
     Indication: ANGINA PECTORIS
     Route: 048
     Dates: start: 20111031, end: 20111104
  11. FAMOTIDINE [Concomitant]
     Indication: PROPHYLAXIS AGAINST GASTROINTESTINAL ULCER
     Route: 048
     Dates: start: 20111029
  12. SIGMART [Concomitant]
     Route: 051
     Dates: start: 20111028, end: 20111028
  13. ASPIRIN [Suspect]
     Route: 048
     Dates: start: 20111029, end: 20120530
  14. CARVEDILOL [Concomitant]
     Route: 048
     Dates: start: 20111108
  15. PERINDOPRIL ERBUMINE [Concomitant]
     Indication: HYPERTENSION
     Route: 048
     Dates: start: 20111029
  16. AMIODARONE HYDROCHLORIDE [Concomitant]
     Indication: ARRHYTHMIA
     Route: 048
     Dates: start: 20111108, end: 20111111
  17. SIGMART [Concomitant]
     Route: 048
     Dates: start: 20111112
  18. SIGMART [Concomitant]
     Route: 048
     Dates: start: 20111112
  19. SIGMART [Concomitant]
     Indication: ACUTE CORONARY SYNDROME
     Route: 042
     Dates: start: 20111028, end: 20111029
  20. SIGMART [Concomitant]
     Route: 051
     Dates: start: 20111028, end: 20111028
  21. SIGMART [Concomitant]
     Indication: ANGINA PECTORIS
     Route: 042
     Dates: start: 20111028, end: 20111029

REACTIONS (2)
  - HAEMORRHAGE INTRACRANIAL [None]
  - FALL [None]
